FAERS Safety Report 15290647 (Version 1)
Quarter: 2018Q3

REPORT INFORMATION
  Report Type: Spontaneous
  Country: US (occurrence: US)
  Receive Date: 20180805
  Receipt Date: 20180805
  Transmission Date: 20181010
  Serious: No
  Sender: FDA-Public Use
  Company Number: None

PATIENT
  Age: 47 Year
  Sex: Female
  Weight: 83.25 kg

DRUGS (9)
  1. GLUCOSAMINE/CHONDROITIN [Concomitant]
  2. TYLENOL [Concomitant]
     Active Substance: ACETAMINOPHEN
  3. VALSARTAN 40MG [Suspect]
     Active Substance: VALSARTAN
     Indication: HYPERTENSION
     Dosage: ?          QUANTITY:1 TABLET(S);?
     Route: 048
     Dates: start: 20180101, end: 20180720
  4. ZOLOFT [Concomitant]
     Active Substance: SERTRALINE HYDROCHLORIDE
  5. FLONASE [Concomitant]
     Active Substance: FLUTICASONE PROPIONATE
  6. ALAVERT ALLERGY [Concomitant]
     Active Substance: LORATADINE
  7. LOSARTAN. [Concomitant]
     Active Substance: LOSARTAN
  8. LIVALO [Concomitant]
     Active Substance: PITAVASTATIN CALCIUM
  9. ADVIL [Concomitant]
     Active Substance: IBUPROFEN

REACTIONS (3)
  - Depression [None]
  - Product use issue [None]
  - Anxiety [None]

NARRATIVE: CASE EVENT DATE: 20180720
